FAERS Safety Report 9748865 (Version 3)
Quarter: 2014Q2

REPORT INFORMATION
  Report Type: Spontaneous
  Country: US (occurrence: US)
  Receive Date: 20131212
  Receipt Date: 20140611
  Transmission Date: 20141212
  Serious: Yes (Other)
  Sender: FDA-Public Use
  Company Number: US-INCYTE CORPORATION-2013IN002055

PATIENT
  Age: 83 Year
  Sex: Female
  Weight: 77.55 kg

DRUGS (1)
  1. JAKAFI [Suspect]
     Indication: MYELOFIBROSIS
     Dosage: 20 MG, BID
     Route: 048
     Dates: start: 20130807

REACTIONS (13)
  - Haemoglobin decreased [Unknown]
  - Somnolence [Recovered/Resolved]
  - Gait disturbance [Unknown]
  - Tremor [Unknown]
  - Memory impairment [Unknown]
  - Fatigue [Unknown]
  - Diarrhoea [Unknown]
  - Musculoskeletal discomfort [Unknown]
  - Alopecia [Unknown]
  - Fall [Recovered/Resolved]
  - Blood count abnormal [Unknown]
  - Contusion [Unknown]
  - Petechiae [Unknown]
